FAERS Safety Report 10528158 (Version 2)
Quarter: 2015Q3

REPORT INFORMATION
  Report Type: Spontaneous
  Country: US (occurrence: US)
  Receive Date: 20141020
  Receipt Date: 20150824
  Transmission Date: 20151125
  Serious: Yes (Hospitalization, Other)
  Sender: FDA-Public Use
  Company Number: US-GLAXOSMITHKLINE-US2014GSK007368

PATIENT
  Age: 71 Year
  Sex: Female

DRUGS (2)
  1. SORIATANE [Suspect]
     Active Substance: ACITRETIN
     Indication: PSORIASIS
     Dosage: 25 MG, QD
     Route: 048
  2. SIMVASTATIN. [Concomitant]
     Active Substance: SIMVASTATIN

REACTIONS (4)
  - Intestinal obstruction [Recovering/Resolving]
  - Blood urine present [Recovering/Resolving]
  - Constipation [Recovering/Resolving]
  - Bladder irrigation [Unknown]

NARRATIVE: CASE EVENT DATE: 20140924
